FAERS Safety Report 6721773-9 (Version None)
Quarter: 2010Q2

REPORT INFORMATION
  Report Type: 
  Country: None (occurrence: None)
  Receive Date: 20100512
  Receipt Date: 20100510
  Transmission Date: 20101027
  Serious: Yes (Other)
  Sender: FDA-Public Use
  Company Number: IT-ROXANE LABORATORIES, INC.-2010-RO-00557RO

PATIENT
  Age: 41 Year
  Sex: Male

DRUGS (3)
  1. OXCARBAZEPINE [Suspect]
     Indication: POST-TRAUMATIC EPILEPSY
     Dosage: 900 MG
  2. PHENOBARBITAL [Suspect]
     Indication: POST-TRAUMATIC EPILEPSY
     Dosage: 100 MG
  3. LEVETIRACETAM [Concomitant]
     Indication: POST-TRAUMATIC EPILEPSY
     Dosage: 1500 MG

REACTIONS (1)
  - ANORGASMIA [None]
